FAERS Safety Report 24696831 (Version 2)
Quarter: 2024Q4

REPORT INFORMATION
  Report Type: Spontaneous
  Country: CN (occurrence: CN)
  Receive Date: 20241204
  Receipt Date: 20241216
  Transmission Date: 20250115
  Serious: Yes (Other)
  Sender: NOVARTIS
  Company Number: CN-002147023-NVSC2024CN228798

PATIENT
  Age: 69 Year
  Sex: Female

DRUGS (3)
  1. EXFORGE [Suspect]
     Active Substance: AMLODIPINE BESYLATE\VALSARTAN
     Indication: Blood pressure measurement
     Dosage: UNK, QD
     Route: 048
  2. EXFORGE [Suspect]
     Active Substance: AMLODIPINE BESYLATE\VALSARTAN
     Dosage: UNK, QD (DOSAGE: HALF A TABLET)
     Route: 048
  3. EXFORGE [Suspect]
     Active Substance: AMLODIPINE BESYLATE\VALSARTAN
     Dosage: 1 DOSAGE FORM, QD (DOSAGE: 1 TABLET)
     Route: 048

REACTIONS (9)
  - Blood pressure increased [Unknown]
  - Blindness [Unknown]
  - Dizziness [Unknown]
  - Gait disturbance [Unknown]
  - Blood pressure diastolic decreased [Unknown]
  - Eye disorder [Unknown]
  - Blood pressure fluctuation [Unknown]
  - Visual acuity reduced [Unknown]
  - Off label use [Unknown]
